FAERS Safety Report 12062437 (Version 1)
Quarter: 2016Q1

REPORT INFORMATION
  Report Type: Spontaneous
  Country: US (occurrence: US)
  Receive Date: 20160210
  Receipt Date: 20160210
  Transmission Date: 20160526
  Serious: No
  Sender: FDA-Public Use
  Company Number: US-ALLERGAN-1302179US

PATIENT
  Age: 51 Year
  Sex: Male

DRUGS (6)
  1. HIV MEDICATIONS NOS [Concomitant]
     Indication: HIV ANTIBODY POSITIVE
     Dosage: UNK
  2. JUVEDERM [Concomitant]
     Active Substance: HYALURONIC ACID
     Indication: SKIN WRINKLING
     Dosage: UNK UNK, SINGLE
     Dates: start: 20130122, end: 20130122
  3. TESTOSTERONE. [Concomitant]
     Active Substance: TESTOSTERONE
     Indication: PRODUCT USED FOR UNKNOWN INDICATION
     Dosage: UNK
  4. BOTOX COSMETIC [Suspect]
     Active Substance: ONABOTULINUMTOXINA
     Indication: SKIN WRINKLING
  5. BOTOX COSMETIC [Suspect]
     Active Substance: ONABOTULINUMTOXINA
     Indication: SKIN WRINKLING
     Dosage: 6 UNITS, SINGLE
     Dates: start: 20130129, end: 20130129
  6. BOTOX COSMETIC [Suspect]
     Active Substance: ONABOTULINUMTOXINA
     Indication: SKIN WRINKLING
     Dosage: 40 UNITS, SINGLE
     Route: 030
     Dates: start: 20130122, end: 20130122

REACTIONS (2)
  - Therapeutic response decreased [Unknown]
  - Therapeutic response decreased [Unknown]

NARRATIVE: CASE EVENT DATE: 20130122
